FAERS Safety Report 4343883-6 (Version None)
Quarter: 2004Q2

REPORT INFORMATION
  Report Type: 
  Country: None (occurrence: None)
  Receive Date: 20040419
  Receipt Date: 20040408
  Transmission Date: 20050107
  Serious: Yes (Death, Hospitalization)
  Sender: FDA-Public Use
  Company Number: 200411111GDS

PATIENT
  Age: 71 Year
  Sex: Male
  Weight: 52 kg

DRUGS (1)
  1. BAYASPIRIN (ACETYLSALICYCLIC ACID) [Suspect]
     Indication: ATRIAL FIBRILLATION
     Dosage: 81 MG, TOTAL DAILY
     Dates: start: 19990101

REACTIONS (22)
  - ABDOMINAL PAIN [None]
  - ABDOMINAL TENDERNESS [None]
  - ANAEMIA [None]
  - ASCITES [None]
  - ATRIAL FIBRILLATION [None]
  - CEREBRAL INFARCTION [None]
  - CYST RUPTURE [None]
  - DEHYDRATION [None]
  - DISEASE RECURRENCE [None]
  - FAECAL INCONTINENCE [None]
  - HAEMATOMA [None]
  - HAEMORRHAGE [None]
  - INFARCTION [None]
  - METABOLIC ACIDOSIS [None]
  - MUSCLE RIGIDITY [None]
  - PERITONEAL HAEMORRHAGE [None]
  - PSEUDOCYST [None]
  - PYREXIA [None]
  - SHOCK [None]
  - SPLENIC CYST [None]
  - SPLENIC INFARCTION [None]
  - WHITE BLOOD CELL COUNT INCREASED [None]
